FAERS Safety Report 9595343 (Version 1)
Quarter: 2013Q4

REPORT INFORMATION
  Report Type: Spontaneous
  Country: US (occurrence: None)
  Receive Date: 20131002
  Receipt Date: 20131002
  Transmission Date: 20140711
  Serious: Yes (Hospitalization)
  Sender: FDA-Public Use
  Company Number: 2013-US-001265

PATIENT
  Sex: Male
  Weight: 81.6 kg

DRUGS (14)
  1. XYREM [Suspect]
     Indication: NARCOLEPSY
     Route: 048
     Dates: start: 20081203, end: 20100120
  2. FISH OIL NATURE MADE (FIISH OIL NATURE MADE) [Concomitant]
  3. BENADRYL (DIPHENHYDRAMINE HYDROCHLORIDE) ONGOING [Concomitant]
  4. VITAMIN C [Concomitant]
  5. PEPCID (FAMOTIDINE) ONGOING [Concomitant]
  6. DEXTROAMPHETAMINE SULFATE (DEXAMPHETAMINE SULFATE) ONGOING [Concomitant]
  7. ZOLOFT (SERTRALINE HYDROCHLORIDE) ONGOING [Concomitant]
  8. SINGULAIR [Concomitant]
  9. PREDNISONE (PREDNISONE) ONGOING [Concomitant]
  10. LYRICA (PREGABALIN) ONGOING [Concomitant]
  11. IRON (IRON) ONGOING [Concomitant]
  12. LASIX (FUROSEMIDE) ONGOING [Concomitant]
  13. DOXEPIN  HCL (DOXDEPIN HYDROCHLORIDE) ONGOING [Concomitant]
  14. PERIACTIN (CYPROHEPTADINE HYDROCHLORIDE) ONGOING [Concomitant]

REACTIONS (2)
  - Wound complication [None]
  - Leg amputation [None]
